FAERS Safety Report 7325436-0 (Version None)
Quarter: 2011Q1

REPORT INFORMATION
  Report Type: 
  Country: None (occurrence: None)
  Receive Date: 20110302
  Receipt Date: 20110222
  Transmission Date: 20110831
  Serious: Yes (Hospitalization)
  Sender: FDA-Public Use
  Company Number: US-JNJFOC-20110205887

PATIENT
  Sex: Male
  Weight: 82.56 kg

DRUGS (12)
  1. REMICADE [Suspect]
     Route: 042
  2. REMICADE [Suspect]
     Route: 042
  3. FOLIC ACID [Concomitant]
     Indication: CROHN'S DISEASE
  4. IMODIUM [Concomitant]
     Indication: CROHN'S DISEASE
  5. REMICADE [Suspect]
     Route: 042
  6. STEROIDS NOS [Concomitant]
     Indication: PREMEDICATION
  7. OMEPRAZOLE [Concomitant]
     Indication: CROHN'S DISEASE
  8. REMICADE [Suspect]
     Route: 042
  9. VITAMIN B-12 [Concomitant]
     Indication: CROHN'S DISEASE
  10. REMICADE [Suspect]
     Indication: CROHN'S DISEASE
     Route: 042
  11. ACETAMINOPHEN [Concomitant]
     Indication: PREMEDICATION
  12. ANTIHISTAMINES [Concomitant]
     Indication: PREMEDICATION

REACTIONS (2)
  - HAEMATOCHEZIA [None]
  - ANAEMIA [None]
